FAERS Safety Report 24784591 (Version 1)
Quarter: 2024Q4

REPORT INFORMATION
  Report Type: Spontaneous
  Country: US (occurrence: None)
  Receive Date: 20241226
  Receipt Date: 20241226
  Transmission Date: 20250115
  Serious: No
  Sender: Public
  Company Number: None

PATIENT
  Age: 69 Year
  Sex: Male
  Weight: 95.25 kg

DRUGS (13)
  1. VYVGART [Suspect]
     Active Substance: EFGARTIGIMOD ALFA-FCAB
     Indication: Myasthenia gravis
     Dosage: 955 MG ONCE A WEEK INTRAVENOUS
     Route: 042
     Dates: start: 20240828
  2. CIALIS [Concomitant]
     Active Substance: TADALAFIL
  3. FLOMAX [Concomitant]
     Active Substance: TAMSULOSIN HYDROCHLORIDE
  4. MESTINON [Concomitant]
     Active Substance: PYRIDOSTIGMINE BROMIDE
  5. ATORVASTATIN CALCIUM [Concomitant]
     Active Substance: ATORVASTATIN CALCIUM
  6. Breo Ellipta Inhalation Aerosol [Concomitant]
  7. SINGULAIR [Concomitant]
     Active Substance: MONTELUKAST SODIUM
  8. PREDNISONE [Concomitant]
     Active Substance: PREDNISONE
  9. VITAMIN C [Concomitant]
     Active Substance: ASCORBIC ACID
  10. PYRIDOSTIGMINE BROMIDE [Concomitant]
     Active Substance: PYRIDOSTIGMINE BROMIDE
  11. ALBUTEROL SULFATE [Concomitant]
     Active Substance: ALBUTEROL SULFATE
  12. Caltrate 600+ D3 [Concomitant]
  13. Centrum Minis Men 50+ [Concomitant]

REACTIONS (3)
  - Hypoaesthesia [None]
  - Pneumonia [None]
  - Respiratory syncytial virus infection [None]

NARRATIVE: CASE EVENT DATE: 20241226
